FAERS Safety Report 6185071-7 (Version None)
Quarter: 2009Q2

REPORT INFORMATION
  Report Type: 
  Country: None (occurrence: None)
  Receive Date: 20090511
  Receipt Date: 20090505
  Transmission Date: 20091009
  Serious: Yes (Other)
  Sender: FDA-Public Use
  Company Number: US-JNJFOC-20090501436

PATIENT
  Sex: Male
  Weight: 124.74 kg

DRUGS (1)
  1. DURAGESIC-100 [Suspect]
     Indication: DRUG USE FOR UNKNOWN INDICATION
     Dosage: TWO 100 UG/HR PATCH
     Route: 062

REACTIONS (1)
  - LIMB INJURY [None]
